FAERS Safety Report 5526547-2 (Version None)
Quarter: 2007Q4

REPORT INFORMATION
  Report Type: 
  Country: None (occurrence: None)
  Receive Date: 20071121
  Receipt Date: 20071121
  Transmission Date: 20080405
  Serious: Yes (Hospitalization)
  Sender: FDA-Public Use
  Company Number: None

PATIENT
  Sex: Male
  Weight: 76.2043 kg

DRUGS (1)
  1. BICILLIN L-A [Suspect]
     Indication: PNEUMONIA
     Dosage: 1,000,000 UNITES Q 6 HRS IV DRIP
     Route: 041
     Dates: start: 20071011, end: 20071011

REACTIONS (1)
  - INCORRECT ROUTE OF DRUG ADMINISTRATION [None]
